FAERS Safety Report 8932303 (Version 1)
Quarter: 2012Q4

REPORT INFORMATION
  Report Type: 
  Country: US (occurrence: US)
  Receive Date: 20121128
  Receipt Date: 20121128
  Transmission Date: 20130627
  Serious: Yes (Hospitalization)
  Sender: FDA-Public Use
  Company Number: US-B.I. PHARMACEUTICALS,INC./RIDGEFIELD-2012-BI-00622BP

PATIENT
  Sex: Female
  Weight: 81.65 kg

DRUGS (3)
  1. MOBIC [Suspect]
     Indication: ARTHRITIS
     Dosage: 7.5 mg
  2. EFFEXOR [Suspect]
     Indication: DEPRESSION
     Dosage: 150 mg
  3. TRAMADOL [Concomitant]
     Dosage: 50 mg

REACTIONS (4)
  - Knee operation [Unknown]
  - Drug ineffective [Unknown]
  - Depression [Recovered/Resolved]
  - Abdominal discomfort [Recovered/Resolved]
